FAERS Safety Report 24906038 (Version 2)
Quarter: 2025Q1

REPORT INFORMATION
  Report Type: Spontaneous
  Country: IT (occurrence: IT)
  Receive Date: 20250130
  Receipt Date: 20250207
  Transmission Date: 20250409
  Serious: Yes (Other)
  Sender: Vantive US Healthcare
  Company Number: IT-VANTIVE-2025VAN000352

PATIENT
  Age: 49 Year
  Sex: Female

DRUGS (7)
  1. EXTRANEAL [Suspect]
     Active Substance: CALCIUM CHLORIDE\ICODEXTRIN\MAGNESIUM CHLORIDE\SODIUM CHLORIDE\SODIUM LACTATE
     Indication: Peritoneal dialysis
     Route: 033
     Dates: start: 20241007, end: 20241018
  2. CALCIUM\DEXTROSE\MAGNESIUM\SODIUM BICARBONATE\SODIUM CHLORIDE\SODIUM L [Concomitant]
     Active Substance: CALCIUM\DEXTROSE\MAGNESIUM\SODIUM BICARBONATE\SODIUM CHLORIDE\SODIUM LACTATE
     Indication: Peritoneal dialysis
     Route: 065
     Dates: start: 20240528
  3. RAMIPRIL [Concomitant]
     Active Substance: RAMIPRIL
     Indication: Hypertension
     Route: 048
     Dates: start: 2011
  4. ALLOPURINOL [Concomitant]
     Active Substance: ALLOPURINOL
     Indication: Hyperuricaemia
     Route: 048
  5. ARANESP [Concomitant]
     Active Substance: DARBEPOETIN ALFA
     Indication: Anaemia
     Route: 058
     Dates: start: 202402
  6. CALCITRIOL [Concomitant]
     Active Substance: CALCITRIOL
     Indication: Hyperparathyroidism
     Route: 048
  7. RENVELA [Concomitant]
     Active Substance: SEVELAMER CARBONATE
     Indication: Hyperphosphataemia
     Route: 048

REACTIONS (7)
  - Ultrafiltration failure [Recovered/Resolved]
  - Inadequate peritoneal dialysis [Unknown]
  - Therapeutic product effect decreased [Unknown]
  - Drug hypersensitivity [Unknown]
  - Skin exfoliation [Recovered/Resolved]
  - Genital erythema [Recovered/Resolved]
  - Palmar erythema [Recovered/Resolved]

NARRATIVE: CASE EVENT DATE: 20241008
